FAERS Safety Report 11884466 (Version 1)
Quarter: 2015Q4

REPORT INFORMATION
  Report Type: Spontaneous
  Country: US (occurrence: None)
  Receive Date: 20151231
  Receipt Date: 20151231
  Transmission Date: 20160305
  Serious: Yes (Other)
  Sender: FDA-Public Use
  Company Number: None

PATIENT
  Age: 68 Year
  Sex: Male
  Weight: 67.13 kg

DRUGS (14)
  1. VITAMIN E [Concomitant]
     Active Substance: .ALPHA.-TOCOPHEROL
  2. OMEPRAZOLE DR [Suspect]
     Active Substance: OMEPRAZOLE
     Indication: GASTROOESOPHAGEAL REFLUX DISEASE
     Dosage: 20 MG ?30 PTOHOMS; 60? REFILL? THRE OWT AFTER HORRIBLE REACTION?BEFORE MEALS 1/2 HOUR ?TOOK 30 ONLY 1 A DAY IN MORNING?THEN 3 DAYS BEFORE MEALS , 3 UITEY AFTER, 3 DAYS SEVERE REACTION DISCONBEL?BY MOUTH IN MORNING ONE 20 MG A DAY BY 30 DAYS THEN 3 DAYS 1 BEFORE MEALS THEN BAD REACTION
     Route: 048
     Dates: start: 20150929
  3. 5-HTP [Concomitant]
     Active Substance: OXITRIPTAN
  4. VITAMIN D3 [Concomitant]
     Active Substance: CHOLECALCIFEROL
  5. MULTIPLE VITAM KIRKLAND BRAND [Concomitant]
  6. VITAMIN MULTIPLE [Concomitant]
  7. VITAMIN B12 [Concomitant]
     Active Substance: CYANOCOBALAMIN
  8. CQ-10 [Concomitant]
  9. VITAMIN C [Concomitant]
     Active Substance: ASCORBIC ACID
  10. CALCIUM [Concomitant]
     Active Substance: CALCIUM
  11. FLAX OIL [Concomitant]
  12. SALMON OIL [Concomitant]
     Active Substance: FISH OIL
  13. MELATONE [Concomitant]
  14. GINKO BILABUA [Concomitant]

REACTIONS (11)
  - Asthenia [None]
  - Gastrooesophageal reflux disease [None]
  - Pruritus [None]
  - Oesophagitis [None]
  - Peripheral swelling [None]
  - Skin discolouration [None]
  - Vomiting [None]
  - Movement disorder [None]
  - Fatigue [None]
  - Dyspnoea [None]
  - Rash [None]

NARRATIVE: CASE EVENT DATE: 20151211
